FAERS Safety Report 5393353-1 (Version None)
Quarter: 2007Q3

REPORT INFORMATION
  Report Type: 
  Country: None (occurrence: None)
  Receive Date: 20070723
  Receipt Date: 20070709
  Transmission Date: 20080115
  Serious: Yes (Hospitalization)
  Sender: FDA-Public Use
  Company Number: PHEH2007US09698

PATIENT
  Age: 41 Year
  Sex: Female
  Weight: 46.258 kg

DRUGS (1)
  1. ZELNORM [Suspect]
     Indication: GASTRIC HYPOMOTILITY
     Dosage: 6 MG, BID
     Route: 048

REACTIONS (2)
  - DISEASE RECURRENCE [None]
  - GASTROINTESTINAL HYPOMOTILITY [None]
